FAERS Safety Report 6444616-X (Version None)
Quarter: 2009Q4

REPORT INFORMATION
  Report Type: 
  Country: None (occurrence: None)
  Receive Date: 20091117
  Receipt Date: 20091117
  Transmission Date: 20100525
  Serious: No
  Sender: FDA-Public Use
  Company Number: None

PATIENT
  Sex: Male

DRUGS (1)
  1. COLCHICINE TABLETS USP [Suspect]
     Indication: GOUT
     Dosage: 0.6 MG, ORAL (047)
     Route: 048

REACTIONS (1)
  - RASH [None]
